FAERS Safety Report 10775943 (Version 1)
Quarter: 2015Q1

REPORT INFORMATION
  Report Type: Spontaneous
  Country: US (occurrence: None)
  Receive Date: 20150205
  Receipt Date: 20150205
  Transmission Date: 20150721
  Serious: Yes (Disabling, Other)
  Sender: FDA-Public Use
  Company Number: None

PATIENT
  Age: 37 Year
  Sex: Male
  Weight: 99.79 kg

DRUGS (1)
  1. CIALIS [Suspect]
     Active Substance: TADALAFIL
     Indication: ERECTILE DYSFUNCTION
     Dosage: TAKEN BY MOUTH
     Route: 048
     Dates: start: 20120201, end: 20141105

REACTIONS (4)
  - Back pain [None]
  - Spondylolisthesis [None]
  - Impaired healing [None]
  - Intervertebral disc protrusion [None]

NARRATIVE: CASE EVENT DATE: 20130714
